FAERS Safety Report 8348765-0 (Version None)
Quarter: 2012Q2

REPORT INFORMATION
  Report Type: 
  Country: None (occurrence: None)
  Receive Date: 20120510
  Receipt Date: 20120507
  Transmission Date: 20120825
  Serious: No
  Sender: FDA-Public Use
  Company Number: US-PFIZER INC-2012111944

PATIENT
  Sex: Female
  Weight: 95.238 kg

DRUGS (1)
  1. EFFEXOR XR [Suspect]
     Indication: DEPRESSION
     Dosage: ONE 150 MG AND ONE 75 MG DAILY

REACTIONS (2)
  - WITHDRAWAL SYNDROME [None]
  - MALAISE [None]
